FAERS Safety Report 8789942 (Version 1)
Quarter: 2012Q4

REPORT INFORMATION
  Report Type: 
  Country: US (occurrence: US)
  Receive Date: 20120914
  Receipt Date: 20120914
  Transmission Date: 20130627
  Serious: Yes (Disabling, Other)
  Sender: FDA-Public Use
  Company Number: US-ELI_LILLY_AND_COMPANY-US201209001754

PATIENT
  Sex: Female

DRUGS (1)
  1. HUMALOG LISPRO [Suspect]
     Indication: DIABETES MELLITUS
     Dosage: 60 u, tid
     Dates: start: 2002

REACTIONS (3)
  - Blindness [Not Recovered/Not Resolved]
  - Haemorrhage [Unknown]
  - Cardiac disorder [Unknown]
